FAERS Safety Report 7815076-9 (Version None)
Quarter: 2011Q4

REPORT INFORMATION
  Report Type: 
  Country: None (occurrence: None)
  Receive Date: 20111013
  Receipt Date: 20111013
  Transmission Date: 20120403
  Serious: No
  Sender: FDA-Public Use
  Company Number: None

PATIENT

DRUGS (1)
  1. ARTHROTEC [Suspect]

REACTIONS (2)
  - GASTRIC DISORDER [None]
  - PAIN [None]
